FAERS Safety Report 8106214-1 (Version None)
Quarter: 2012Q1

REPORT INFORMATION
  Report Type: 
  Country: None (occurrence: None)
  Receive Date: 20120130
  Receipt Date: 20120118
  Transmission Date: 20120608
  Serious: Yes (Other)
  Sender: FDA-Public Use
  Company Number: 128824

PATIENT
  Age: 18 Year
  Sex: Female
  Weight: 62.5964 kg

DRUGS (6)
  1. METHOTREXATE [Suspect]
     Indication: COLITIS ULCERATIVE
     Dosage: 0.4ML SUBCUTANEOUSLY IN THE ABDOMEN ONCE
     Route: 058
     Dates: start: 20111228
  2. METHOTREXATE [Suspect]
     Indication: ANKYLOSING SPONDYLITIS
     Dosage: 0.4ML SUBCUTANEOUSLY IN THE ABDOMEN ONCE
     Route: 058
     Dates: start: 20111228
  3. METHOTREXATE [Suspect]
     Indication: COLITIS ULCERATIVE
     Dosage: 0.4ML SUBCUTANEOUSLY IN THE ABDOMEN ONCE
     Route: 058
     Dates: start: 20120118
  4. METHOTREXATE [Suspect]
     Indication: ANKYLOSING SPONDYLITIS
     Dosage: 0.4ML SUBCUTANEOUSLY IN THE ABDOMEN ONCE
     Route: 058
     Dates: start: 20120118
  5. OMEPRAZOLE [Concomitant]
  6. FOLIC ACID [Concomitant]

REACTIONS (4)
  - EXPIRED DRUG ADMINISTERED [None]
  - MEDICATION ERROR [None]
  - DRUG DISPENSING ERROR [None]
  - SINUSITIS [None]
